FAERS Safety Report 5700755-X (Version None)
Quarter: 2008Q2

REPORT INFORMATION
  Report Type: 
  Country: None (occurrence: None)
  Receive Date: 20080410
  Receipt Date: 20080328
  Transmission Date: 20081010
  Serious: No
  Sender: FDA-Public Use
  Company Number: A0714629A

PATIENT
  Age: 66 Year
  Sex: Female
  Weight: 62.7 kg

DRUGS (5)
  1. TYKERB [Suspect]
     Indication: BREAST CANCER
     Dosage: 3TAB PER DAY
     Route: 048
     Dates: start: 20080303
  2. XELODA [Concomitant]
     Indication: BREAST CANCER
     Dosage: 2000MG PER DAY
     Route: 048
     Dates: start: 20080121
  3. XANAX [Concomitant]
  4. VITAMINS [Concomitant]
  5. CALCIUM [Concomitant]

REACTIONS (2)
  - BLOOD PRESSURE INCREASED [None]
  - LIP OEDEMA [None]
